FAERS Safety Report 7184115-3 (Version None)
Quarter: 2010Q4

REPORT INFORMATION
  Report Type: 
  Country: None (occurrence: None)
  Receive Date: 20101123
  Receipt Date: 20100825
  Transmission Date: 20110411
  Serious: No
  Sender: FDA-Public Use
  Company Number: 017796

PATIENT
  Sex: Female
  Weight: 77.1 kg

DRUGS (8)
  1. CIMZIA [Suspect]
     Indication: RHEUMATOID ARTHRITIS
     Dosage: (TWO INJECTIONS MONTHLY SUBCUTANEOUS)
     Route: 058
  2. PREDNISONE [Concomitant]
  3. PAROXETINE HCL [Concomitant]
  4. MULTI-VITAMINS [Concomitant]
  5. TRAZODONE HCL [Concomitant]
  6. TOPAMAX [Concomitant]
  7. TEMAZEPM [Concomitant]
  8. CLONAZEPAM [Concomitant]

REACTIONS (1)
  - HEAT RASH [None]
